FAERS Safety Report 25760839 (Version 1)
Quarter: 2025Q3

REPORT INFORMATION
  Report Type: Spontaneous
  Country: CN (occurrence: CN)
  Receive Date: 20250904
  Receipt Date: 20250904
  Transmission Date: 20251020
  Serious: Yes (Other)
  Sender: BAYER HEALTHCARE PHARMACEUTICALS INC.
  Company Number: CN-BAYER-2025A116001

PATIENT
  Age: 66 Year
  Sex: Male
  Weight: 60 kg

DRUGS (1)
  1. STIVARGA [Suspect]
     Active Substance: REGORAFENIB MONOHYDRATE
     Indication: Hepatocellular carcinoma
     Dosage: 120 MG, QD
     Route: 048
     Dates: start: 20250728, end: 20250817

REACTIONS (7)
  - Myelosuppression [Recovering/Resolving]
  - Asthenia [Recovering/Resolving]
  - Abdominal pain upper [None]
  - Tongue erythema [None]
  - Pulse abnormal [None]
  - Product prescribing issue [None]
  - Incorrect dose administered [None]

NARRATIVE: CASE EVENT DATE: 20250728
